FAERS Safety Report 11181760 (Version 2)
Quarter: 2016Q1

REPORT INFORMATION
  Report Type: Spontaneous
  Country: US (occurrence: US)
  Receive Date: 20150611
  Receipt Date: 20160301
  Transmission Date: 20160525
  Serious: Yes (Other)
  Sender: FDA-Public Use
  Company Number: US-ASTELLAS-2015US008133

PATIENT
  Sex: Male

DRUGS (4)
  1. PROVENGE [Concomitant]
     Active Substance: SIPULEUCEL-T
     Indication: PRODUCT USED FOR UNKNOWN INDICATION
     Dosage: 03 DOSES, EVERY TWO WEEKS
     Route: 065
  2. XTANDI [Suspect]
     Active Substance: ENZALUTAMIDE
     Route: 048
  3. XTANDI [Suspect]
     Active Substance: ENZALUTAMIDE
     Indication: PROSTATE CANCER
     Route: 048
     Dates: start: 20150801
  4. XTANDI [Suspect]
     Active Substance: ENZALUTAMIDE
     Dosage: 2 DF (80MG), ONCE DAILY
     Route: 048
     Dates: end: 20160204

REACTIONS (11)
  - Urinary retention [Unknown]
  - Urinary tract infection [Unknown]
  - Vertigo [Unknown]
  - Hot flush [Unknown]
  - Genital haemorrhage [Unknown]
  - Genital pain [Unknown]
  - Dysuria [Unknown]
  - Haemorrhage urinary tract [Unknown]
  - Bone pain [Unknown]
  - Thrombosis in device [Unknown]
  - Anaemia [Unknown]
